FAERS Safety Report 7704191 (Version 2)
Quarter: 2013Q1

REPORT INFORMATION
  Report Type: Spontaneous
  Country: US (occurrence: None)
  Receive Date: 20101115
  Receipt Date: 20121015
  Transmission Date: 20140127
  Serious: Yes (Other)
  Sender: FDA-Public Use
  Company Number: 2010MA004402

PATIENT
  Sex: Female
  Weight: 65.77 kg

DRUGS (97)
  1. METOCLOPRAMIDE [Suspect]
     Indication: GASTROOESOPHAGEAL REFLUX DISEASE
     Dosage: PO
     Route: 048
     Dates: start: 20030125, end: 20030125
  2. METOCLOPRAMIDE [Suspect]
     Indication: GASTROOESOPHAGEAL REFLUX DISEASE
     Dosage: PO
     Route: 048
     Dates: start: 20030125, end: 20030125
  3. ABILIFY [Concomitant]
  4. ACETAMINOPHEN W/CODEINE [Concomitant]
  5. ACTOS [Concomitant]
  6. ACYCLOVIR [Concomitant]
  7. ADVAIR [Concomitant]
  8. ALBUTEROL [Concomitant]
  9. AMANTADINE [Concomitant]
  10. AMBIEN [Concomitant]
  11. ASACOL [Concomitant]
  12. ASPIR-LOW [Concomitant]
  13. ATENOLOL [Concomitant]
  14. AVELOX [Concomitant]
  15. AZITHROMYCIN [Concomitant]
  16. AZMACORT [Concomitant]
  17. BUSPIRONE [Concomitant]
  18. CEFDINIR [Concomitant]
  19. CEPHALEXIN [Concomitant]
  20. CLONAZEPAM [Concomitant]
  21. CEFACLOR [Concomitant]
  22. CIPROFLOXACIN [Concomitant]
  23. CITALOPRAM [Concomitant]
  24. CLARITHROMYCIN [Concomitant]
  25. CLOTRIMAZOLE [Concomitant]
  26. CLOTRIMAZOLE/BETAMETHASONE [Concomitant]
  27. COMBIVENT [Concomitant]
  28. COZAAR [Concomitant]
  29. CYCLOBENZAPRINE [Concomitant]
  30. DICYCLOMINE [Concomitant]
  31. DILTIAZEM [Concomitant]
  32. DIOVAN [Concomitant]
  33. DOXYCYCLINE [Concomitant]
  34. FERROUS SULFATE [Concomitant]
  35. FLOVENT [Concomitant]
  36. FLUCONAZOLE [Concomitant]
  37. FLUOXETINE [Concomitant]
  38. FLUTICASONE [Concomitant]
  39. FUROSEMIDE [Concomitant]
  40. GEMFIBROZIL [Concomitant]
  41. GENTAMICIN [Concomitant]
  42. GEODON [Concomitant]
  43. GLIPIZIDE [Concomitant]
  44. GLUCOTROL XL [Concomitant]
  45. HYDROXYZINE [Concomitant]
  46. IBUPROFEN [Concomitant]
  47. INDOMETHACIN [Concomitant]
  48. INSULIN [Concomitant]
  49. KETOCONAZOLE [Concomitant]
  50. LEVAQUIN [Concomitant]
  51. LEXAPRO [Concomitant]
  52. LIPITOR [Concomitant]
  53. MACROBID [Concomitant]
  54. MECLIZINE [Concomitant]
  55. MELOXICAM [Concomitant]
  56. METFORMIN [Concomitant]
  57. METRONIDAZOLE [Concomitant]
  58. MIRAPEX [Concomitant]
  59. NASACORT [Concomitant]
  60. NEOMYCIN/POLYMYXIN HC [Concomitant]
  61. NEXIUM [Concomitant]
  62. NITROFURANTOIN [Concomitant]
  63. NYSTATIN [Concomitant]
  64. NYSTATIN/TRIAMCINOLONE [Concomitant]
  65. OMEPRAZOLE [Concomitant]
  66. PANCOF PD [Concomitant]
  67. PERMETHRIN [Concomitant]
  68. PERPHENAZINE [Concomitant]
  69. PHENYLEPHRINE/GUAIFENESIN [Concomitant]
  70. POTASSIUM [Concomitant]
  71. PREDNISONE [Concomitant]
  72. PREMARIN [Concomitant]
  73. PREMPRO [Concomitant]
  74. PREVACID [Concomitant]
  75. PRIMIDONE [Concomitant]
  76. PROCHLORPERAZINE [Concomitant]
  77. PROMETHAZINE [Concomitant]
  78. PROMETHAZINE/CODEINE [Concomitant]
  79. RANITIDINE [Concomitant]
  80. RISPERDAL [Concomitant]
  81. ROPINIROLE [Concomitant]
  82. SEROQUEL [Concomitant]
  83. SERZONE [Concomitant]
  84. SIMVASTATIN [Concomitant]
  85. SPIRIVA [Concomitant]
  86. SUCRALFATE [Concomitant]
  87. TEMAZEPAM [Concomitant]
  88. TERAZOL 7 [Concomitant]
  89. THEOPHYLLINE [Concomitant]
  90. TRAMADOL [Concomitant]
  91. TRAZODONE [Concomitant]
  92. TRICOR [Concomitant]
  93. TUSSIN DM [Concomitant]
  94. VENLAFAXINE [Concomitant]
  95. XOPENEX [Concomitant]
  96. ZITHROMAX [Concomitant]
  97. ZOLOFT [Concomitant]

REACTIONS (5)
  - Tardive dyskinesia [None]
  - Extrapyramidal disorder [None]
  - Economic problem [None]
  - Emotional distress [None]
  - Tremor [None]
